FAERS Safety Report 5219701-0 (Version None)
Quarter: 2006Q4

REPORT INFORMATION
  Report Type: 
  Country: None (occurrence: None)
  Receive Date: 20061201
  Receipt Date: 20060705
  Transmission Date: 20070319
  Serious: No
  Sender: FDA-Public Use
  Company Number: 2006PV016903

PATIENT
  Age: 47 Year
  Sex: Female
  Weight: 104.3273 kg

DRUGS (6)
  1. BYETTA [Suspect]
     Indication: DIABETES MELLITUS NON-INSULIN-DEPENDENT
     Dosage: SEE IMAGE
     Route: 058
     Dates: start: 20060301, end: 20060613
  2. BYETTA [Suspect]
     Indication: DIABETES MELLITUS NON-INSULIN-DEPENDENT
     Dosage: SEE IMAGE
     Route: 058
     Dates: start: 20060614
  3. BYETTA [Suspect]
  4. LANTUS [Suspect]
     Dosage: SEE IMAGE
     Route: 058
  5. PRANDIN [Concomitant]
  6. METFORMIN HCL [Concomitant]

REACTIONS (12)
  - BLOOD GLUCOSE DECREASED [None]
  - CHOLELITHIASIS [None]
  - COLD SWEAT [None]
  - DECREASED APPETITE [None]
  - EARLY SATIETY [None]
  - GALLBLADDER OPERATION [None]
  - HEPATIC ENZYME INCREASED [None]
  - INCISIONAL HERNIA [None]
  - INJECTION SITE BRUISING [None]
  - LIVER FUNCTION TEST ABNORMAL [None]
  - NERVOUSNESS [None]
  - WEIGHT DECREASED [None]
